FAERS Safety Report 5489767-1 (Version None)
Quarter: 2007Q4

REPORT INFORMATION
  Report Type: 
  Country: None (occurrence: None)
  Receive Date: 20071018
  Receipt Date: 20061019
  Transmission Date: 20080405
  Serious: Yes (Hospitalization)
  Sender: FDA-Public Use
  Company Number: US-ASTRAZENECA-2006UW17732

PATIENT
  Age: 16990 Day
  Sex: Male

DRUGS (2)
  1. MERREM [Suspect]
     Route: 042
     Dates: start: 20060710
  2. CIPRO [Suspect]
     Route: 042
     Dates: start: 20060717

REACTIONS (1)
  - CLOSTRIDIUM DIFFICILE COLITIS [None]
